FAERS Safety Report 8598279-8 (Version None)
Quarter: 2012Q3

REPORT INFORMATION
  Report Type: 
  Country: None (occurrence: None)
  Receive Date: 20120816
  Receipt Date: 20120809
  Transmission Date: 20120928
  Serious: Yes (Hospitalization)
  Sender: FDA-Public Use
  Company Number: PHHY2012BE064563

PATIENT
  Age: 19 Year
  Sex: Female

DRUGS (1)
  1. GILENYA [Suspect]
     Indication: MULTIPLE SCLEROSIS
     Dosage: 0.5 MG, QD
     Route: 048
     Dates: start: 20111001, end: 20120726

REACTIONS (9)
  - JAUNDICE [None]
  - RED BLOOD CELL COUNT DECREASED [None]
  - PYREXIA [None]
  - HYPERSENSITIVITY [None]
  - LYMPHOCYTE COUNT DECREASED [None]
  - HAPTOGLOBIN DECREASED [None]
  - HAEMOLYTIC ANAEMIA [None]
  - BLOOD LACTATE DEHYDROGENASE INCREASED [None]
  - ABDOMINAL PAIN UPPER [None]
